FAERS Safety Report 15117729 (Version 3)
Quarter: 2019Q2

REPORT INFORMATION
  Report Type: Report from Study
  Country: JP (occurrence: JP)
  Receive Date: 20180707
  Receipt Date: 20190506
  Transmission Date: 20190711
  Serious: Yes (Death, Life-Threatening)
  Sender: FDA-Public Use
  Company Number: JP-AMGEN-JPNSP2018091287

PATIENT
  Age: 82 Year
  Sex: Female

DRUGS (36)
  1. DARBEPOETIN ALFA [Suspect]
     Active Substance: DARBEPOETIN ALFA
     Indication: MYELODYSPLASTIC SYNDROME
     Dosage: 240 MICROGRAM
     Route: 058
     Dates: start: 20171222, end: 20171222
  2. CARBON [Concomitant]
     Active Substance: ACTIVATED CHARCOAL
     Dosage: 2 G, TID (IN THE MORNING, NOON AND EVENING)
     Route: 048
     Dates: start: 20180523
  3. SUNRYTHM [Concomitant]
     Active Substance: PILSICAINIDE HYDROCHLORIDE
     Indication: ARRHYTHMIA
     Dosage: 50 MG, BID (AFTER BREAKFAST AND DINNER)
     Route: 048
     Dates: start: 20180523, end: 20181105
  4. ENALAPRIL MALEATE. [Concomitant]
     Active Substance: ENALAPRIL MALEATE
     Indication: HYPERTENSION
     Dosage: 5 MILLIGRAM, QD
     Route: 048
     Dates: start: 20180523, end: 20181127
  5. MONTELUKAST [Concomitant]
     Active Substance: MONTELUKAST SODIUM
     Dosage: 10 MILLIGRAM, QD
     Route: 048
     Dates: start: 20180523
  6. AMLODIPINE [Concomitant]
     Active Substance: AMLODIPINE BESYLATE
     Indication: HYPERTENSION
     Dosage: UNK UNK, QD (AFTER BREAKFAST)
     Route: 048
     Dates: start: 20180523
  7. MUCOSOLATE L [Concomitant]
     Indication: BRONCHITIS CHRONIC
     Dosage: 45 MILLIGRAM, QD
     Route: 048
     Dates: start: 20180523, end: 20180924
  8. MIYA-BM [Concomitant]
     Active Substance: CLOSTRIDIUM BUTYRICUM SPORES STRAIN M-55
     Indication: DIARRHOEA
     Dosage: 1 DF, TID (IN THE MORNING, NOON AND EVENING)
     Route: 048
  9. MEROPENEM. [Concomitant]
     Active Substance: MEROPENEM
     Dosage: 1 GRAM
     Route: 041
     Dates: start: 20180921, end: 20180925
  10. PILSICAINIDE HYDROCHLORIDE [Concomitant]
     Active Substance: PILSICAINIDE HYDROCHLORIDE
     Dosage: 50 MG, BID (AFTER BREAKFAST AND DINNER)
     Route: 048
     Dates: start: 20180523
  11. ARGAMATE [Concomitant]
     Active Substance: CALCIUM POLYSTYRENE SULFONATE
     Indication: HYPERKALAEMIA
     Dosage: 25 G, BID (AFTER BREAKFAST AND DINNER)
     Route: 048
  12. MEROPENEM. [Concomitant]
     Active Substance: MEROPENEM
     Indication: PNEUMONIA
     Dosage: 1 GRAM
     Route: 041
     Dates: start: 20180621, end: 20180627
  13. TEICOPLANIN [Concomitant]
     Active Substance: TEICOPLANIN
     Indication: PNEUMONIA
     Dosage: 400 MG
     Route: 041
     Dates: start: 20180621, end: 20180623
  14. SINGULAIR [Concomitant]
     Active Substance: MONTELUKAST SODIUM
     Indication: ASTHMA
     Dosage: 10 MILLIGRAM
     Route: 048
     Dates: end: 20181105
  15. BISOLVON [Concomitant]
     Active Substance: BROMHEXINE HYDROCHLORIDE
     Indication: PNEUMONIA
  16. DARBEPOETIN ALFA [Suspect]
     Active Substance: DARBEPOETIN ALFA
     Dosage: 240 MICROGRAM, Q2WK
     Route: 058
     Dates: start: 20171226, end: 20180515
  17. LENALIDOMIDE [Concomitant]
     Active Substance: LENALIDOMIDE
     Dosage: UNK
     Route: 048
  18. MAGMITT [Concomitant]
     Active Substance: MAGNESIUM OXIDE
     Indication: CONSTIPATION
     Dosage: 330 MG, BID (AFTER BREAKFAST AND DINNER)
     Route: 048
     Dates: start: 20180523
  19. MIYA-BM [Concomitant]
     Active Substance: CLOSTRIDIUM BUTYRICUM SPORES STRAIN M-55
     Dosage: 1 DF, TID (IN THE MORNING, NOON AND EVENING)
     Route: 048
     Dates: end: 20181127
  20. CEFEPIME [Concomitant]
     Active Substance: CEFEPIME HYDROCHLORIDE
     Dosage: 0.5 GRAM
     Route: 040
     Dates: start: 20180619, end: 20180621
  21. IRSOGLADINE MALEATE [Concomitant]
     Active Substance: IRSOGLADINE MALEATE
     Indication: HYPERTENSION
     Dosage: 4 MILLIGRAM
     Route: 048
     Dates: end: 20180522
  22. CEFDITOREN PIVOXIL. [Concomitant]
     Active Substance: CEFDITOREN PIVOXIL
     Indication: BRONCHITIS
     Dosage: 300 MILLIGRAM
     Route: 048
     Dates: start: 20180516, end: 20180519
  23. MAGMITT [Concomitant]
     Active Substance: MAGNESIUM OXIDE
     Dosage: 330 MG, BID (AFTER BREAKFAST AND DINNER)
     Route: 048
     Dates: start: 20180523, end: 20181127
  24. ARGAMATE [Concomitant]
     Active Substance: CALCIUM POLYSTYRENE SULFONATE
     Dosage: 25 G, BID (AFTER BREAKFAST AND DINNER)
     Route: 048
     Dates: start: 20181120, end: 20181127
  25. MEROPENEM. [Concomitant]
     Active Substance: MEROPENEM
     Indication: FEBRILE NEUTROPENIA
     Dosage: 0.25 MILLIGRAM
     Route: 041
     Dates: start: 20180621
  26. DECADRON [Concomitant]
     Active Substance: DEXAMETHASONE
     Indication: MYELODYSPLASTIC SYNDROME
     Dosage: 0.5 MILLIGRAM
     Route: 048
     Dates: end: 20180109
  27. DECADRON [Concomitant]
     Active Substance: DEXAMETHASONE
     Dosage: 1 MILLIGRAM
     Route: 048
     Dates: start: 20181006, end: 20181127
  28. REVLIMID [Concomitant]
     Active Substance: LENALIDOMIDE
     Dosage: UNK, QD
     Route: 048
     Dates: start: 20180524, end: 201806
  29. AMLODIPINE [Concomitant]
     Active Substance: AMLODIPINE BESYLATE
     Dosage: 2.5 MG, QD, (AFTER BREAKFAST)
     Route: 048
     Dates: start: 20180523, end: 20180924
  30. ARGAMATE [Concomitant]
     Active Substance: CALCIUM POLYSTYRENE SULFONATE
     Dosage: 25 G, BID (AFTER BREAKFAST AND DINNER)
     Route: 048
     Dates: start: 20180529, end: 20180709
  31. TEICOPLANIN [Concomitant]
     Active Substance: TEICOPLANIN
     Indication: FEBRILE NEUTROPENIA
     Dosage: 200 MG, UNK
     Route: 041
     Dates: start: 20180621
  32. BISOLVON [Concomitant]
     Active Substance: BROMHEXINE HYDROCHLORIDE
     Indication: FEBRILE NEUTROPENIA
     Dosage: 8 MG
     Route: 065
     Dates: start: 20180621, end: 20180627
  33. DARBEPOETIN ALFA [Suspect]
     Active Substance: DARBEPOETIN ALFA
     Dosage: 240 MICROGRAM, Q2WK
     Route: 058
     Dates: start: 20180605, end: 20180703
  34. ARGAMATE [Concomitant]
     Active Substance: CALCIUM POLYSTYRENE SULFONATE
     Dosage: 25 G, BID (AFTER BREAKFAST AND DINNER)
     Route: 048
     Dates: start: 20181003, end: 20181015
  35. KREMEZIN [Concomitant]
     Active Substance: ACTIVATED CHARCOAL
     Indication: CHRONIC KIDNEY DISEASE
     Dosage: 2 G, TID (IN THE MORNING, NOON AND EVENING)
     Route: 048
     Dates: start: 20180523, end: 20181127
  36. CEFTRIAXONE SODIUM HYDRATE [Concomitant]
     Active Substance: CEFTRIAXONE SODIUM
     Indication: FEBRILE NEUTROPENIA
     Dosage: 1 GRAM
     Route: 065
     Dates: start: 20180730, end: 20180731

REACTIONS (5)
  - Pyrexia [Recovered/Resolved]
  - Transformation to acute myeloid leukaemia [Fatal]
  - Pneumonia [Recovered/Resolved]
  - Diarrhoea [Recovered/Resolved]
  - Decreased appetite [Recovered/Resolved]

NARRATIVE: CASE EVENT DATE: 20180619
